FAERS Safety Report 21812705 (Version 1)
Quarter: 2022Q4

REPORT INFORMATION
  Report Type: Spontaneous
  Country: US (occurrence: None)
  Receive Date: 20221231
  Receipt Date: 20221231
  Transmission Date: 20230113
  Serious: Yes (Other)
  Sender: FDA-Public Use
  Company Number: None

PATIENT
  Age: 74 Year
  Sex: Male

DRUGS (39)
  1. RECLAST [Suspect]
     Active Substance: ZOLEDRONIC ACID
     Indication: Osteoporosis
     Dosage: OTHER FREQUENCY : ANNUALLY;?
     Route: 042
  2. DEVICE [Concomitant]
     Active Substance: DEVICE
  3. DEVICE [Concomitant]
     Active Substance: DEVICE
  4. MECLIZINE [Concomitant]
     Active Substance: MECLIZINE HYDROCHLORIDE
  5. ALBUTEROL [Concomitant]
     Active Substance: ALBUTEROL
  6. SIMVASTATIN [Concomitant]
     Active Substance: SIMVASTATIN
  7. DULERA [Concomitant]
     Active Substance: FORMOTEROL FUMARATE DIHYDRATE\MOMETASONE FUROATE
  8. CIALIS [Concomitant]
     Active Substance: TADALAFIL
  9. CETIRIZENE [Concomitant]
  10. CALCIUM [Concomitant]
     Active Substance: CALCIUM
  11. MAGNESIUM [Concomitant]
     Active Substance: MAGNESIUM
  12. ZINC [Concomitant]
     Active Substance: ZINC
  13. VITAMIN B COMPLEX [Concomitant]
     Active Substance: CYANOCOBALAMIN\DEXPANTHENOL\NIACINAMIDE\PYRIDOXINE HYDROCHLORIDE\RIBOFLAVIN 5^-PHOSPHATE SODIUM\THIA
  14. ASIAN GINSENG [Concomitant]
     Active Substance: ASIAN GINSENG
  15. COENZYME Q10 [Concomitant]
     Active Substance: DIETARY SUPPLEMENT\UBIDECARENONE
  16. N-ACETYOCYSTEINE [Concomitant]
  17. PRASTERONE [Concomitant]
     Active Substance: PRASTERONE
  18. QUERCITIN AND BROMELAIN [Concomitant]
  19. ULTIMATE 16 STRAIN PROBIOTIC [Concomitant]
  20. VITAMIN A [Concomitant]
     Active Substance: VITAMIN A
  21. FISH OIL\OMEGA-3 FATTY ACIDS [Concomitant]
     Active Substance: FISH OIL\OMEGA-3 FATTY ACIDS
  22. COD LIVER OIL [Concomitant]
     Active Substance: COD LIVER OIL
  23. L-GLUTAMINE [Concomitant]
  24. L-LYSIONE [Concomitant]
  25. CHONDROITIN SULFATE (BOVINE)\GLUCOSAMINE HYDROCHLORIDE [Concomitant]
     Active Substance: CHONDROITIN SULFATE (BOVINE)\GLUCOSAMINE HYDROCHLORIDE
  26. MINERAL CITRATE [Concomitant]
  27. ORCHIC GANDULAR [Concomitant]
  28. LECITHIN [Concomitant]
     Active Substance: LECITHIN
  29. KELP [Concomitant]
     Active Substance: KELP
  30. KRILL OIL [Concomitant]
     Active Substance: DIETARY SUPPLEMENT\KRILL OIL
  31. NIACIN [Concomitant]
     Active Substance: NIACIN
  32. BETAINE [Concomitant]
     Active Substance: BETAINE
  33. VITAMIN B12 [Concomitant]
     Active Substance: CYANOCOBALAMIN
  34. HERBALS\SAW PALMETTO [Concomitant]
     Active Substance: HERBALS\SAW PALMETTO
  35. TONGKAT ALI [Concomitant]
  36. MELATONIN [Concomitant]
     Active Substance: MELATONIN
  37. HERBALS\TURMERIC [Concomitant]
     Active Substance: HERBALS\TURMERIC
  38. VITAMIN E [Concomitant]
     Active Substance: .ALPHA.-TOCOPHEROL
  39. ARGININE [Concomitant]
     Active Substance: ARGININE

REACTIONS (10)
  - Infusion related reaction [None]
  - Respiratory disorder [None]
  - Diaphragmatic paralysis [None]
  - Pneumothorax [None]
  - Hypopnoea [None]
  - Discomfort [None]
  - Pain [None]
  - Dyspnoea exertional [None]
  - Phrenic nerve injury [None]
  - Muscle spasms [None]

NARRATIVE: CASE EVENT DATE: 20221101
